FAERS Safety Report 17156264 (Version 1)
Quarter: 2019Q4

REPORT INFORMATION
  Report Type: Spontaneous
  Country: GB (occurrence: GB)
  Receive Date: 20191216
  Receipt Date: 20191216
  Transmission Date: 20200122
  Serious: Yes (Other)
  Sender: FDA-Public Use
  Company Number: GB-TEVA-728835ACC

PATIENT
  Age: 1 Hour
  Sex: Male

DRUGS (1)
  1. PAROXETINE. [Suspect]
     Active Substance: PAROXETINE
     Route: 064

REACTIONS (5)
  - Body temperature fluctuation [Recovered/Resolved]
  - Hypoglycaemia neonatal [Recovered/Resolved]
  - Neonatal seizure [Recovered/Resolved]
  - Foetal exposure during pregnancy [Unknown]
  - Neonatal respiratory distress [Recovered/Resolved]
